FAERS Safety Report 4746924-7 (Version None)
Quarter: 2005Q3

REPORT INFORMATION
  Report Type: 
  Country: None (occurrence: None)
  Receive Date: 20050817
  Receipt Date: 20050815
  Transmission Date: 20060218
  Serious: Yes (Death, Life-Threatening, Hospitalization)
  Sender: FDA-Public Use
  Company Number: AU-SANOFI-SYNTHELABO-F01200501550

PATIENT
  Sex: Male
  Weight: 52 kg

DRUGS (2)
  1. OXALIPLATIN [Suspect]
     Indication: OESOPHAGEAL CARCINOMA
     Route: 042
     Dates: start: 20041210, end: 20041210
  2. FLUOROURACIL [Suspect]
     Route: 042
     Dates: start: 20041210, end: 20041210

REACTIONS (1)
  - OESOPHAGEAL STENOSIS [None]
